FAERS Safety Report 6125552-5 (Version None)
Quarter: 2009Q1

REPORT INFORMATION
  Report Type: 
  Country: None (occurrence: None)
  Receive Date: 20090320
  Receipt Date: 20090316
  Transmission Date: 20090719
  Serious: Yes (Life-Threatening, Hospitalization)
  Sender: FDA-Public Use
  Company Number: DE-BAYER-200910854GPV

PATIENT
  Age: 59 Year
  Sex: Male
  Weight: 75 kg

DRUGS (34)
  1. SORAFENIB [Suspect]
     Indication: NON-SMALL CELL LUNG CANCER
     Route: 048
     Dates: start: 20081210, end: 20081214
  2. SORAFENIB [Suspect]
     Route: 048
     Dates: start: 20081218
  3. GEMCITABINE [Suspect]
     Indication: NON-SMALL CELL LUNG CANCER
     Route: 065
  4. CISPLATIN [Suspect]
     Indication: NON-SMALL CELL LUNG CANCER
     Route: 065
  5. METOCLOPRAMIDE [Concomitant]
     Indication: NAUSEA
     Route: 048
     Dates: start: 20090105
  6. SODIUM CHLORIDE [Concomitant]
     Indication: NAUSEA
     Route: 042
     Dates: start: 20090105, end: 20090108
  7. VOMEX A [Concomitant]
     Indication: VOMITING
     Route: 048
     Dates: start: 20090105
  8. SPIRIVA [Concomitant]
     Indication: CHRONIC OBSTRUCTIVE PULMONARY DISEASE
     Route: 065
     Dates: start: 20080401
  9. BERODUAL [Concomitant]
     Indication: CHRONIC OBSTRUCTIVE PULMONARY DISEASE
     Route: 065
     Dates: start: 19930101
  10. BRONCHORETARD [Concomitant]
     Indication: CHRONIC OBSTRUCTIVE PULMONARY DISEASE
     Route: 065
     Dates: start: 19930101
  11. DECORTIN [Concomitant]
     Indication: EMPHYSEMA
     Route: 065
     Dates: start: 20081112
  12. DELIX [Concomitant]
     Indication: HYPERTENSION
     Route: 065
     Dates: start: 20081112
  13. PULMICORT-100 [Concomitant]
     Indication: CHRONIC OBSTRUCTIVE PULMONARY DISEASE
     Route: 065
     Dates: start: 20081112
  14. STILNOX [Concomitant]
     Indication: INSOMNIA
     Route: 065
     Dates: start: 20081112
  15. PANTOZOL [Concomitant]
     Indication: PROPHYLAXIS
     Route: 065
     Dates: start: 20081119
  16. VOLTAREN [Concomitant]
     Indication: PELVIC PAIN
     Route: 065
     Dates: start: 20081119
  17. FRAGMIN [Concomitant]
     Indication: THROMBOSIS PROPHYLAXIS
     Route: 065
     Dates: start: 20081119
  18. VALORON [Concomitant]
     Indication: PELVIC PAIN
     Route: 065
     Dates: start: 20081201
  19. EMEND [Concomitant]
     Indication: PROPHYLAXIS
     Route: 065
     Dates: start: 20081211, end: 20081212
  20. EMEND [Concomitant]
     Route: 065
     Dates: start: 20090109, end: 20090110
  21. EMEND [Concomitant]
     Route: 065
     Dates: start: 20081231, end: 20090101
  22. DEXAMETHASONE [Concomitant]
     Indication: PROPHYLAXIS
     Route: 065
     Dates: start: 20081211, end: 20081213
  23. DEXAMETHASONE [Concomitant]
     Route: 065
     Dates: start: 20081231, end: 20090102
  24. DEXAMETHASONE [Concomitant]
     Route: 065
     Dates: start: 20090109, end: 20090111
  25. PASPERTIN [Concomitant]
     Indication: PROPHYLAXIS
     Route: 065
     Dates: start: 20090105
  26. PASPERTIN [Concomitant]
     Route: 065
     Dates: start: 20081210, end: 20081213
  27. POTASSIUM CHLORIDE [Concomitant]
     Indication: PROPHYLAXIS
     Route: 065
     Dates: start: 20081230, end: 20081231
  28. FUROSEMID [Concomitant]
     Indication: PROPHYLAXIS
     Route: 065
     Dates: start: 20081230, end: 20081230
  29. ACETAMINOPHEN [Concomitant]
     Indication: ARTHRALGIA
     Route: 065
     Dates: start: 20081231, end: 20081231
  30. METOCLOPRAMIDE [Concomitant]
     Indication: PROPHYLAXIS
     Route: 065
     Dates: start: 20081230, end: 20081230
  31. MST [Concomitant]
     Indication: ARTHRALGIA
     Route: 065
     Dates: start: 20090105
  32. NOVALGIN [Concomitant]
     Indication: ARTHRALGIA
     Route: 065
     Dates: start: 20090105, end: 20090109
  33. CALCIUM [Concomitant]
     Indication: HYPOCALCAEMIA
     Route: 065
     Dates: start: 20090122
  34. KALINOR [Concomitant]
     Indication: HYPOKALAEMIA
     Route: 065
     Dates: start: 20081218

REACTIONS (4)
  - GENERAL PHYSICAL HEALTH DETERIORATION [None]
  - NAUSEA [None]
  - PULMONARY EMBOLISM [None]
  - VOMITING [None]
